FAERS Safety Report 5521298-2 (Version None)
Quarter: 2007Q4

REPORT INFORMATION
  Report Type: 
  Country: None (occurrence: None)
  Receive Date: 20071119
  Receipt Date: 20061201
  Transmission Date: 20080405
  Serious: No
  Sender: FDA-Public Use
  Company Number: US-BOEHRINGER INGELHEIM PHARMACEUTICALS, INC.-2007-BP-01352BP

PATIENT
  Age: 75 Year
  Sex: Male

DRUGS (4)
  1. ZANTAC 150 [Suspect]
     Indication: HYPERCHLORHYDRIA
     Dosage: 1 TABLET
     Route: 048
     Dates: start: 20061128, end: 20061129
  2. PANTOPRAZOLE SODIUM [Suspect]
     Route: 048
  3. ATORVASTATIN CALCIUM [Concomitant]
     Dosage: 10 MG ONCE DAILY
     Route: 048
  4. LEVOTHYROXINE SODIUM [Concomitant]
     Dosage: 125 MCG
     Route: 048

REACTIONS (1)
  - DIARRHOEA [None]
